FAERS Safety Report 15425317 (Version 1)
Quarter: 2018Q3

REPORT INFORMATION
  Report Type: Spontaneous
  Country: US (occurrence: US)
  Receive Date: 20180925
  Receipt Date: 20180925
  Transmission Date: 20181010
  Serious: No
  Sender: FDA-Public Use
  Company Number: US-3M-2017-US-012330

PATIENT
  Age: 74 Year
  Sex: Female
  Weight: 54.43 kg

DRUGS (3)
  1. PERIDEX [Suspect]
     Active Substance: CHLORHEXIDINE GLUCONATE
     Indication: DENTAL CLEANING
     Dosage: 1 TIME SPRAYED IN MOUTH
     Route: 048
     Dates: start: 20170927, end: 20170927
  2. VITAMIN D [Concomitant]
     Active Substance: CHOLECALCIFEROL
  3. UNSPECIFIED STATIN [Concomitant]

REACTIONS (4)
  - Dysgeusia [Unknown]
  - Burning sensation [Unknown]
  - Paraesthesia oral [Unknown]
  - Dry mouth [Unknown]

NARRATIVE: CASE EVENT DATE: 20170927
